FAERS Safety Report 5054423-0 (Version None)
Quarter: 2006Q3

REPORT INFORMATION
  Report Type: 
  Country: None (occurrence: None)
  Receive Date: 20060713
  Receipt Date: 20060626
  Transmission Date: 20061208
  Serious: Yes (Death)
  Sender: FDA-Public Use
  Company Number: CERZ-11267

PATIENT
  Age: 76 Year
  Sex: Male
  Weight: 80 kg

DRUGS (1)
  1. CEREZYME [Suspect]
     Indication: GAUCHER'S DISEASE
     Dosage: 25 U/KG Q4WKS IV
     Route: 042
     Dates: start: 20010405, end: 20060501

REACTIONS (2)
  - AORTIC STENOSIS [None]
  - CARDIAC DEATH [None]
